FAERS Safety Report 8532303-3 (Version None)
Quarter: 2012Q3

REPORT INFORMATION
  Report Type: 
  Country: None (occurrence: None)
  Receive Date: 20120724
  Receipt Date: 20120711
  Transmission Date: 20120928
  Serious: Yes (Death, Hospitalization)
  Sender: FDA-Public Use
  Company Number: GB-ACCORD-014103

PATIENT
  Age: 79 Year
  Sex: Female
  Weight: 55.45 kg

DRUGS (27)
  1. BISOPROLOL FUMARATE [Concomitant]
     Dosage: INCREASED TO 5MG ONCE DAILY.
  2. AMOXICILLIN AND CLAVULANATE POTASSIUM [Concomitant]
  3. AMIODARONE HCL [Concomitant]
     Dosage: STOPPED AS RISK OF LUNG FIBROSIS.
  4. ACETAMINOPHEN [Concomitant]
  5. WARFARIN SODIUM [Concomitant]
     Indication: PULMONARY EMBOLISM
  6. SPIRONOLACTONE [Suspect]
  7. GENTAMICIN [Concomitant]
  8. DALTEPARIN SODIUM [Concomitant]
  9. TEICOPLANIN [Concomitant]
  10. CLARITHROMYCIN [Suspect]
     Indication: PNEUMONIA
     Route: 048
     Dates: start: 20120512, end: 20120521
  11. HEPARIN [Concomitant]
     Indication: PULMONARY EMBOLISM
  12. BUMETANIDE [Suspect]
  13. DICLOFENAC DIETHYLAMINE [Concomitant]
  14. CLOTRIMAZOLE [Concomitant]
  15. SIMVASTATIN [Suspect]
  16. ACETAMINOPHEN AND CODEINE PHOSPHATE [Concomitant]
  17. OMEPRAZOLE [Concomitant]
  18. ADCAL-D3 [Concomitant]
  19. FUROSEMIDE [Concomitant]
  20. FORTISIP [Concomitant]
  21. DIORALYTE [Concomitant]
  22. TRAMADOL HYDROCHLORIDE [Concomitant]
  23. CANDESARTAN [Concomitant]
  24. METOCLOPRAMIDE [Concomitant]
  25. METHOTREXATE [Suspect]
     Dosage: STOPPED ON ADMISSION. PULMONARY FIBROSIS SECONDARY TO METHOTREXATE AND FLUID OVERLOAD.
  26. FOLIC ACID [Concomitant]
  27. ADENOSINE [Concomitant]

REACTIONS (6)
  - HAEMOGLOBIN DECREASED [None]
  - TOXIC EPIDERMAL NECROLYSIS [None]
  - ATRIAL FIBRILLATION [None]
  - PULMONARY FIBROSIS [None]
  - FLUID OVERLOAD [None]
  - RENAL FAILURE ACUTE [None]
